FAERS Safety Report 6289885-4 (Version None)
Quarter: 2009Q3

REPORT INFORMATION
  Report Type: 
  Country: None (occurrence: None)
  Receive Date: 20090730
  Receipt Date: 20081107
  Transmission Date: 20100115
  Serious: Yes (Other)
  Sender: FDA-Public Use
  Company Number: US-BRISTOL-MYERS SQUIBB COMPANY-14324776

PATIENT
  Age: 77 Year
  Sex: Male
  Weight: 75 kg

DRUGS (4)
  1. COUMADIN [Suspect]
     Indication: HEART VALVE REPLACEMENT
     Dosage: 1999 TO NI RESTARTED ON 2008 TO NI
     Route: 048
     Dates: start: 19990101
  2. ASPIRIN [Suspect]
     Indication: PROPHYLAXIS
     Route: 048
     Dates: start: 20050101, end: 20080701
  3. LOVENOX [Suspect]
     Indication: ANTICOAGULANT THERAPY
     Dosage: TOTAL NO OF DOSES: 40
     Dates: start: 20080101
  4. LISINOPRIL [Concomitant]
     Route: 048

REACTIONS (2)
  - BLEEDING TIME PROLONGED [None]
  - PLATELET COUNT DECREASED [None]
